FAERS Safety Report 5866933-4 (Version None)
Quarter: 2008Q3

REPORT INFORMATION
  Report Type: 
  Country: None (occurrence: None)
  Receive Date: 20080902
  Receipt Date: 20080826
  Transmission Date: 20090109
  Serious: Yes (Death, Hospitalization)
  Sender: FDA-Public Use
  Company Number: US-BAYER-US-2006-036839

PATIENT
  Age: 58 Year
  Sex: Male
  Weight: 89 kg

DRUGS (7)
  1. CAMPATH [Suspect]
     Indication: CHRONIC LYMPHOCYTIC LEUKAEMIA
     Route: 058
     Dates: start: 20060710, end: 20060915
  2. FLUDARA [Suspect]
     Indication: CHRONIC LYMPHOCYTIC LEUKAEMIA
     Route: 042
     Dates: start: 20060710, end: 20060915
  3. ADRIAMYCIN PFS [Concomitant]
     Indication: CHRONIC LYMPHOCYTIC LEUKAEMIA
     Dates: start: 20061013, end: 20061013
  4. RITUXAN [Concomitant]
     Indication: CHRONIC LYMPHOCYTIC LEUKAEMIA
     Dates: start: 20061113, end: 20061113
  5. ADRIAMYCIN PFS [Concomitant]
     Dates: start: 20061113, end: 20061113
  6. VINCRISTINE [Concomitant]
     Indication: CHRONIC LYMPHOCYTIC LEUKAEMIA
     Dates: start: 20061113, end: 20061113
  7. NEULASTA [Concomitant]
     Dates: start: 20061114, end: 20061114

REACTIONS (6)
  - ADENOVIRUS INFECTION [None]
  - BRONCHOPNEUMONIA [None]
  - CHRONIC LYMPHOCYTIC LEUKAEMIA [None]
  - HYPOXIC ENCEPHALOPATHY [None]
  - OBSTRUCTIVE UROPATHY [None]
  - RENAL FAILURE [None]
